FAERS Safety Report 9196946 (Version 3)
Quarter: 2013Q2

REPORT INFORMATION
  Report Type: Report from Study
  Country: DE (occurrence: DE)
  Receive Date: 20130328
  Receipt Date: 20130503
  Transmission Date: 20140414
  Serious: Yes (Hospitalization)
  Sender: FDA-Public Use
  Company Number: DE-UCBSA-081358

PATIENT
  Age: 39 Year
  Sex: Female

DRUGS (10)
  1. VIMPAT [Suspect]
     Indication: EPILEPSY
     Dosage: STARTING DOSE 50 MG/DAY
     Dates: start: 20091202
  2. VIMPAT [Suspect]
     Indication: EPILEPSY
     Dosage: DOSE AT VISIT 400 MG/DAY
     Dates: end: 20100426
  3. LEVETIRACETAM [Concomitant]
     Indication: EPILEPSY
     Route: 048
  4. ZONEGRAN [Concomitant]
     Indication: EPILEPSY
     Dosage: DOSE 400 MG/DAY
     Route: 048
  5. TRILEPTAL [Concomitant]
     Indication: EPILEPSY
     Dosage: DOSE 900 MG/DAY
     Route: 048
     Dates: end: 201004
  6. ORIFIRL LONG [Concomitant]
     Indication: EPILEPSY
     Dosage: 2400 MG/DAY
     Dates: end: 2010
  7. ORIFIRL LONG [Concomitant]
     Indication: EPILEPSY
     Dosage: DOSE REDUCED TO 1200 MG/DAY
     Route: 048
     Dates: start: 2010
  8. ORIFIRL LONG [Concomitant]
     Indication: EPILEPSY
     Route: 048
  9. ORIFIRL LONG [Concomitant]
     Indication: EPILEPSY
     Route: 048
  10. FRISIUM [Concomitant]
     Indication: EPILEPSY
     Route: 048
     Dates: end: 201004

REACTIONS (3)
  - Convulsion [Unknown]
  - Fatigue [Recovered/Resolved]
  - Drug ineffective [Recovered/Resolved]
